FAERS Safety Report 18165932 (Version 2)
Quarter: 2020Q4

REPORT INFORMATION
  Report Type: Spontaneous
  Country: TR (occurrence: TR)
  Receive Date: 20200819
  Receipt Date: 20201008
  Transmission Date: 20210113
  Serious: No
  Sender: FDA-Public Use
  Company Number: TR-TOLMAR, INC.-20TR022409

PATIENT
  Sex: Male

DRUGS (2)
  1. ELIGARD [Suspect]
     Active Substance: LEUPROLIDE ACETATE
     Indication: PROSTATE CANCER
     Dosage: 22.5 MG, Q 3 MONTH
     Route: 065
     Dates: start: 20200805
  2. ELIGARD [Suspect]
     Active Substance: LEUPROLIDE ACETATE
     Dosage: 22.5 MG, Q 3 MONTH
     Route: 065
     Dates: start: 20171107

REACTIONS (3)
  - Syringe issue [None]
  - Circumstance or information capable of leading to medication error [None]
  - Wrong technique in product usage process [None]

NARRATIVE: CASE EVENT DATE: 20200805
